FAERS Safety Report 5122679-1 (Version None)
Quarter: 2006Q4

REPORT INFORMATION
  Report Type: 
  Country: None (occurrence: None)
  Receive Date: 20061004
  Receipt Date: 20060919
  Transmission Date: 20070319
  Serious: Yes (Other)
  Sender: FDA-Public Use
  Company Number: CIP06002148

PATIENT
  Sex: Female

DRUGS (1)
  1. OPTINATE(RISEDRONATE SODIUM) TABLET [Suspect]
     Dosage: SEE IMAGE
     Route: 048

REACTIONS (2)
  - COLON CANCER [None]
  - NEOPLASM MALIGNANT [None]
